FAERS Safety Report 11599141 (Version 1)
Quarter: 2015Q4

REPORT INFORMATION
  Report Type: Spontaneous
  Country: US (occurrence: US)
  Receive Date: 20151006
  Receipt Date: 20151006
  Transmission Date: 20160304
  Serious: Yes (Hospitalization)
  Sender: FDA-Public Use
  Company Number: US-MYLANLABS-2015M1033257

PATIENT

DRUGS (1)
  1. KETAMINE [Suspect]
     Active Substance: KETAMINE
     Indication: SEDATIVE THERAPY
     Dosage: RECEIVED 20MG/KG INSTEAD OF 2 MG/KG DUE TO AN ERROR
     Route: 030

REACTIONS (3)
  - Sedation [Recovered/Resolved]
  - Medication error [Recovered/Resolved]
  - Accidental overdose [Recovered/Resolved]
